FAERS Safety Report 9735503 (Version 3)
Quarter: 2015Q3

REPORT INFORMATION
  Report Type: Spontaneous
  Country: US (occurrence: US)
  Receive Date: 20131206
  Receipt Date: 20150804
  Transmission Date: 20151125
  Serious: No
  Sender: FDA-Public Use
  Company Number: US-GILEAD-2009-0022759

PATIENT
  Age: 73 Year
  Sex: Female
  Weight: 77.11 kg

DRUGS (7)
  1. LETAIRIS [Suspect]
     Active Substance: AMBRISENTAN
     Route: 048
     Dates: start: 20080408
  2. REVATIO [Concomitant]
     Active Substance: SILDENAFIL CITRATE
  3. TYLENOL ARTHRITIS PAIN [Concomitant]
     Active Substance: ACETAMINOPHEN
  4. COUMADIN [Concomitant]
     Active Substance: WARFARIN SODIUM
  5. SIMVASTIN [Concomitant]
     Active Substance: SIMVASTATIN
  6. NIFEREX GOLD [Concomitant]
  7. TRIAMTERENE HCTZ [Concomitant]
     Active Substance: HYDROCHLOROTHIAZIDE\TRIAMTERENE

REACTIONS (1)
  - Liver function test abnormal [Unknown]
